FAERS Safety Report 8120137-3 (Version None)
Quarter: 2012Q1

REPORT INFORMATION
  Report Type: 
  Country: None (occurrence: None)
  Receive Date: 20120203
  Receipt Date: 20120125
  Transmission Date: 20120608
  Serious: Yes (Other)
  Sender: FDA-Public Use
  Company Number: AUR-APL-2012-00670

PATIENT
  Age: 65 Year
  Sex: Female

DRUGS (3)
  1. LOSARTAN POTASSIUM AND HYDROCHLOROTHIAZIDE [Suspect]
     Indication: PRODUCT USED FOR UNKNOWN INDICATION
     Dosage: 1 D ORAL
     Route: 048
     Dates: start: 20111001
  2. METFORMIN ER (METFORMIN HYDROCHLORIDE) [Concomitant]
  3. NEXIUM [Concomitant]

REACTIONS (2)
  - CHROMATURIA [None]
  - PRODUCT QUALITY ISSUE [None]
